FAERS Safety Report 5245489-3 (Version None)
Quarter: 2007Q1

REPORT INFORMATION
  Report Type: 
  Country: None (occurrence: None)
  Receive Date: 20070223
  Receipt Date: 20070213
  Transmission Date: 20070707
  Serious: Yes (Life-Threatening, Hospitalization, Other)
  Sender: FDA-Public Use
  Company Number: US-PFIZER INC-2004080828

PATIENT
  Sex: Female

DRUGS (9)
  1. NEURONTIN [Suspect]
     Indication: DEPRESSION
     Route: 048
  2. NEURONTIN [Suspect]
     Indication: BIPOLAR DISORDER
  3. NEURONTIN [Suspect]
     Indication: MOOD SWINGS
  4. NEURONTIN [Suspect]
     Indication: PAIN
  5. DESYREL [Suspect]
     Indication: INSOMNIA
     Route: 048
  6. KLONOPIN [Suspect]
     Indication: INSOMNIA
     Route: 048
  7. CELEXA [Suspect]
     Indication: DEPRESSION
  8. CELEXA [Suspect]
     Indication: BIPOLAR DISORDER
  9. LORAZEPAM [Suspect]

REACTIONS (8)
  - FEELING ABNORMAL [None]
  - IMPULSE-CONTROL DISORDER [None]
  - INTENTIONAL OVERDOSE [None]
  - INTENTIONAL SELF-INJURY [None]
  - MAJOR DEPRESSION [None]
  - PERSONALITY DISORDER [None]
  - SUICIDAL BEHAVIOUR [None]
  - SUICIDE ATTEMPT [None]
